FAERS Safety Report 9736680 (Version 2)
Quarter: 2013Q4

REPORT INFORMATION
  Report Type: Spontaneous
  Country: US (occurrence: US)
  Receive Date: 20131206
  Receipt Date: 20131206
  Transmission Date: 20140711
  Serious: No
  Sender: FDA-Public Use
  Company Number: US-GILEAD-2009-0023203

PATIENT
  Sex: Female
  Weight: 49.89 kg

DRUGS (19)
  1. LETAIRIS [Suspect]
     Indication: PULMONARY ARTERIAL HYPERTENSION
     Route: 048
     Dates: start: 20090427
  2. VENTAVIS [Concomitant]
  3. NITROGLYCERIN [Concomitant]
  4. COUMADIN [Concomitant]
  5. LASIX [Concomitant]
  6. ASPIRIN [Concomitant]
  7. OXYGEN [Concomitant]
  8. PULMICORT [Concomitant]
  9. PERFOROMIST [Concomitant]
  10. NYSTATIN [Concomitant]
  11. ENBREL [Concomitant]
  12. PREDNISONE [Concomitant]
  13. GLUCOPHAGE XR [Concomitant]
  14. PHENOBARBITAL [Concomitant]
  15. MEGACE [Concomitant]
  16. METHOTREXATE [Concomitant]
  17. TYLENOL W/CODEINE #3 [Concomitant]
  18. DILANTIN [Concomitant]
  19. FOLIC ACID [Concomitant]

REACTIONS (1)
  - Fatigue [Unknown]
